FAERS Safety Report 7521792-9 (Version None)
Quarter: 2011Q2

REPORT INFORMATION
  Report Type: 
  Country: None (occurrence: None)
  Receive Date: 20110603
  Receipt Date: 20110531
  Transmission Date: 20111010
  Serious: Yes (Death, Other)
  Sender: FDA-Public Use
  Company Number: PHHY2011US27219

PATIENT
  Sex: Male

DRUGS (8)
  1. GILENYA [Suspect]
     Indication: RELAPSING-REMITTING MULTIPLE SCLEROSIS
     Dosage: 1 DF, DAILY
     Route: 048
     Dates: start: 20110215
  2. FLUOXETINE HCL [Concomitant]
     Dosage: UNK UKN, OT
  3. DICLOFENAC SODIUM [Concomitant]
     Dosage: UNK UKN, OT
  4. SULAR [Concomitant]
     Dosage: UNK UKN, OT
  5. ZOCOR [Concomitant]
     Dosage: UNK UKN, OT
  6. WARFARIN SODIUM [Concomitant]
     Dosage: UNK UKN, OT
  7. ZOFRAN [Concomitant]
     Dosage: UNK UKN, OT
  8. ROPINIROLE [Concomitant]
     Dosage: UNK UKN, OT

REACTIONS (2)
  - DEATH [None]
  - MULTIPLE SCLEROSIS [None]
